FAERS Safety Report 18871129 (Version 2)
Quarter: 2021Q1

REPORT INFORMATION
  Report Type: Spontaneous
  Country: US (occurrence: US)
  Receive Date: 20210210
  Receipt Date: 20210309
  Transmission Date: 20210420
  Serious: No
  Sender: FDA-Public Use
  Company Number: US-BIOVITRUM-2021US1300

PATIENT
  Sex: Female
  Weight: 9 kg

DRUGS (5)
  1. TIMOLOL MALEATE. [Concomitant]
     Active Substance: TIMOLOL MALEATE
     Dosage: 0.5 % DROP DAILY
  2. POLY?VI?SOL WITH IRON [Concomitant]
     Active Substance: IRON\VITAMINS
     Dosage: 160 MG/5ML
  3. ACETAMINOPHEN. [Concomitant]
     Active Substance: ACETAMINOPHEN
  4. SYNAGIS [Suspect]
     Active Substance: PALIVIZUMAB
     Indication: PREMATURE BABY
     Dosage: 100MG/1ML VL LIQUID, 50MG/0.5ML VL LIQUID
     Route: 030
     Dates: start: 20201214
  5. IBUPROFEN. [Concomitant]
     Active Substance: IBUPROFEN
     Dosage: 100 MG/5ML

REACTIONS (2)
  - Insomnia [Unknown]
  - Irritability [Unknown]
